FAERS Safety Report 25367860 (Version 1)
Quarter: 2025Q2

REPORT INFORMATION
  Report Type: Report from Study
  Country: US (occurrence: US)
  Receive Date: 20250528
  Receipt Date: 20250528
  Transmission Date: 20250717
  Serious: Yes (Other)
  Sender: ACCORD
  Company Number: US-SUMITOMO PHARMA SWITZERLAND GMBH-2024SPA002371

PATIENT
  Age: 77 Year
  Sex: Male

DRUGS (28)
  1. ATORVASTATIN [Suspect]
     Active Substance: ATORVASTATIN
     Indication: Product used for unknown indication
  2. RELUGOLIX [Suspect]
     Active Substance: RELUGOLIX
     Indication: Prostate cancer
     Dosage: 360 MG, SINGLE
     Route: 048
     Dates: start: 20240215, end: 20240215
  3. ASPIRIN [Concomitant]
     Active Substance: ASPIRIN
  4. FENOFIBRATE [Concomitant]
     Active Substance: FENOFIBRATE
  5. FERROUS GLUCONATE [Concomitant]
     Active Substance: FERROUS GLUCONATE
  6. FLOMAX [Concomitant]
     Active Substance: TAMSULOSIN HYDROCHLORIDE
  7. FOLIC ACID [Concomitant]
     Active Substance: FOLIC ACID
  8. GLUCOSAMINE [Concomitant]
     Active Substance: GLUCOSAMINE
  9. LIPITOR [Concomitant]
     Active Substance: ATORVASTATIN CALCIUM
  10. LOSARTAN [Concomitant]
     Active Substance: LOSARTAN
  11. METOPROLOL SUCCINATE [Concomitant]
     Active Substance: METOPROLOL SUCCINATE
  12. MIRABEGRON [Concomitant]
     Active Substance: MIRABEGRON
  13. Apoaequorin [Concomitant]
  14. PROTONIX [Concomitant]
     Active Substance: PANTOPRAZOLE SODIUM
  15. TYLENOL [Concomitant]
     Active Substance: ACETAMINOPHEN
  16. VITAMIN B12 [Concomitant]
     Active Substance: CYANOCOBALAMIN
  17. VITAMIN E [Concomitant]
     Active Substance: .ALPHA.-TOCOPHEROL
  18. XARELTO [Concomitant]
     Active Substance: RIVAROXABAN
  19. ZETIA [Concomitant]
     Active Substance: EZETIMIBE
  20. DAROLUTAMIDE [Concomitant]
     Active Substance: DAROLUTAMIDE
     Dosage: 300 MG, BID
     Dates: start: 20241219
  21. DIGOXIN [Concomitant]
     Active Substance: DIGOXIN
  22. HYDROCHLOROTHIAZIDE [Concomitant]
     Active Substance: HYDROCHLOROTHIAZIDE
  23. TOLNAFTATE [Concomitant]
     Active Substance: TOLNAFTATE
  24. LIDOCAINE [Concomitant]
     Active Substance: LIDOCAINE
  25. LYRICA [Concomitant]
     Active Substance: PREGABALIN
  26. NITROSTAT [Concomitant]
     Active Substance: NITROGLYCERIN
  27. NORCO [Concomitant]
     Active Substance: ACETAMINOPHEN\HYDROCODONE BITARTRATE
  28. RELUGOLIX [Suspect]
     Active Substance: RELUGOLIX
     Indication: Prostate cancer
     Dosage: 120 MG, QD
     Route: 048
     Dates: start: 20240216

REACTIONS (17)
  - Cataract [Unknown]
  - Dental care [Unknown]
  - Sciatica [Not Recovered/Not Resolved]
  - Carpal tunnel syndrome [Unknown]
  - Thermal burn [Unknown]
  - Disease progression [Unknown]
  - Prostatic specific antigen increased [Unknown]
  - Pollakiuria [Unknown]
  - Drug interaction [Unknown]
  - Dysstasia [Unknown]
  - Amnesia [Unknown]
  - Dizziness [Unknown]
  - Musculoskeletal stiffness [Unknown]
  - Pain in extremity [Unknown]
  - Back pain [Unknown]
  - Neck pain [Unknown]
  - Product dose omission issue [Unknown]
